FAERS Safety Report 24189879 (Version 1)
Quarter: 2024Q3

REPORT INFORMATION
  Report Type: Spontaneous
  Country: US (occurrence: US)
  Receive Date: 20240808
  Receipt Date: 20240808
  Transmission Date: 20241017
  Serious: No
  Sender: TARO
  Company Number: US-TARO PHARMACEUTICALS USA INC.-2024TAR00931

PATIENT

DRUGS (1)
  1. ADAPALENE [Suspect]
     Active Substance: ADAPALENE
     Indication: Acne
     Dosage: UNK, 1/WEEK, ONCE A WEEK AT NIGHT
     Route: 061
     Dates: start: 202406, end: 20240626

REACTIONS (4)
  - Hypersensitivity [Not Recovered/Not Resolved]
  - Eye swelling [Not Recovered/Not Resolved]
  - Eyelid rash [Not Recovered/Not Resolved]
  - Rash [Not Recovered/Not Resolved]

NARRATIVE: CASE EVENT DATE: 20240601
